FAERS Safety Report 10380826 (Version 4)
Quarter: 2014Q4

REPORT INFORMATION
  Report Type: Report from Study
  Country: JP (occurrence: JP)
  Receive Date: 20140813
  Receipt Date: 20141030
  Transmission Date: 20150528
  Serious: Yes (Hospitalization, Other)
  Sender: FDA-Public Use
  Company Number: JP-NOVOPROD-404955

PATIENT
  Age: 82 Year
  Sex: Female

DRUGS (12)
  1. OLMETEC [Concomitant]
     Active Substance: OLMESARTAN MEDOXOMIL
     Dosage: UNK
     Route: 048
     Dates: end: 20140416
  2. LUVOX [Concomitant]
     Active Substance: FLUVOXAMINE MALEATE
     Dosage: UNK
     Route: 048
     Dates: end: 20140416
  3. TRAZENTA [Concomitant]
     Active Substance: LINAGLIPTIN
     Dosage: UNK
     Route: 048
     Dates: start: 20130416, end: 20140416
  4. MIRCERA [Concomitant]
     Active Substance: PEGZEREPOETIN ALFA
     Dosage: UNK
     Route: 065
     Dates: end: 20140408
  5. ACTONEL [Concomitant]
     Active Substance: RISEDRONATE SODIUM
     Dosage: UNK
     Route: 048
     Dates: end: 20140416
  6. FLUITRAN [Concomitant]
     Active Substance: TRICHLORMETHIAZIDE
     Dosage: UNK
     Route: 048
     Dates: end: 20140416
  7. BAYASPIRIN [Concomitant]
     Active Substance: ASPIRIN
     Dosage: UNK
     Route: 048
     Dates: end: 20140416
  8. ARGAMATE [Concomitant]
     Active Substance: POLYSTYRENE
     Dosage: UNK
     Route: 048
     Dates: end: 20140416
  9. NOVONORM [Suspect]
     Active Substance: REPAGLINIDE
     Indication: TYPE 2 DIABETES MELLITUS
     Dosage: 0.5 MG, QD
     Route: 048
     Dates: start: 20120625, end: 20140416
  10. RIVASTACH [Concomitant]
     Active Substance: RIVASTIGMINE
     Dosage: UNK
     Route: 065
     Dates: end: 20140416
  11. ZYLORIC [Concomitant]
     Active Substance: ALLOPURINOL
     Dosage: UNK
     Route: 048
     Dates: end: 20140416
  12. LIPLE [Concomitant]
     Dosage: UNK
     Route: 065
     Dates: end: 20130313

REACTIONS (3)
  - Blood glucose increased [Not Recovered/Not Resolved]
  - Weight increased [Unknown]
  - Fractured coccyx [Unknown]

NARRATIVE: CASE EVENT DATE: 20121001
